FAERS Safety Report 8018350-9 (Version None)
Quarter: 2012Q1

REPORT INFORMATION
  Report Type: 
  Country: None (occurrence: None)
  Receive Date: 20120103
  Receipt Date: 20111222
  Transmission Date: 20120608
  Serious: Yes (Other)
  Sender: FDA-Public Use
  Company Number: US-PFIZER INC-2005092117

PATIENT
  Age: 68 Year
  Sex: Male

DRUGS (1)
  1. VIAGRA [Suspect]
     Dosage: 2 EVERY 1 WEEKS 50 TO 100MG
     Route: 048

REACTIONS (2)
  - RETINAL DETACHMENT [None]
  - CHORIORETINOPATHY [None]
